FAERS Safety Report 18443224 (Version 2)
Quarter: 2021Q1

REPORT INFORMATION
  Report Type: Spontaneous
  Country: JP (occurrence: JP)
  Receive Date: 20201029
  Receipt Date: 20210326
  Transmission Date: 20210419
  Serious: Yes (Hospitalization, Other)
  Sender: FDA-Public Use
  Company Number: JP-TAKEDA-2020TUS045015

PATIENT
  Age: 36 Year
  Sex: Female
  Weight: 52 kg

DRUGS (6)
  1. LIALDA [Suspect]
     Active Substance: MESALAMINE
     Indication: COLITIS ULCERATIVE
     Dosage: 1200 MILLIGRAM
     Route: 048
     Dates: start: 201808, end: 202008
  2. FERROUS CITRATE NA [Concomitant]
     Active Substance: SODIUM FERROUS CITRATE
     Indication: IRON DEFICIENCY ANAEMIA
  3. BUTYRIC ACID;LACTOBACILLUS ACIDOPHILUS [Concomitant]
  4. PENTASA [Concomitant]
     Active Substance: MESALAMINE
  5. LIALDA [Suspect]
     Active Substance: MESALAMINE
     Dosage: 2400 MILLIGRAM, QD
     Route: 048
     Dates: start: 20180814, end: 20180816
  6. ASACOL [Concomitant]
     Active Substance: MESALAMINE

REACTIONS (2)
  - Hepatic function abnormal [Recovered/Resolved]
  - Enterocolitis haemorrhagic [Recovered/Resolved]

NARRATIVE: CASE EVENT DATE: 20150815
